FAERS Safety Report 17957367 (Version 1)
Quarter: 2020Q2

REPORT INFORMATION
  Report Type: Spontaneous
  Country: JP (occurrence: JP)
  Receive Date: 20200629
  Receipt Date: 20200629
  Transmission Date: 20200714
  Serious: Yes (Other)
  Sender: FDA-Public Use
  Company Number: JP-PFIZER INC-2020249613

PATIENT
  Age: 51 Year
  Sex: Female
  Weight: 41 kg

DRUGS (10)
  1. ACELIO [Concomitant]
     Active Substance: ACETAMINOPHEN
     Dosage: 100 MG, 4X/DAY
     Route: 065
     Dates: start: 20190702, end: 20190704
  2. CEFAZOLIN NA [Concomitant]
     Active Substance: CEFAZOLIN SODIUM
     Dosage: UNK UNK, UNKNOWN FREQ.
     Route: 065
     Dates: start: 20190702
  3. DINAGEST [Concomitant]
     Active Substance: DIENOGEST
     Dosage: 2 MG/DAY, UNKNOWN FREQ.
     Route: 065
     Dates: start: 20190701
  4. TAKECAB [Concomitant]
     Active Substance: VONOPRAZAN FUMARATE
     Dosage: 20 MG, 1X/DAY
     Route: 065
     Dates: start: 20190701
  5. REBAMIPIDE [Concomitant]
     Active Substance: REBAMIPIDE
     Dosage: UNK UNK, UNKNOWN FREQ.
     Route: 065
     Dates: start: 20190701
  6. MOHRUS [Concomitant]
     Active Substance: KETOPROFEN
     Dosage: UNK UNK, UNKNOWN FREQ.
     Route: 065
     Dates: start: 20190703
  7. DAIKENCHUTO [Concomitant]
     Active Substance: HERBALS
     Dosage: 7.5 G/DAY, UNKNOWN FREQ.
     Route: 065
     Dates: start: 20190704
  8. CELECOX [Suspect]
     Active Substance: CELECOXIB
     Indication: PROCEDURAL PAIN
     Dosage: 400 MG IN THE MORNING AND 200 MG IN THE EVENING, TWICE DAILY
     Route: 048
     Dates: start: 20190704, end: 20190704
  9. CELECOX [Suspect]
     Active Substance: CELECOXIB
     Dosage: 200 MG, 2X/DAY
     Route: 048
     Dates: start: 20190705, end: 20190705
  10. MAGMITT [Concomitant]
     Active Substance: MAGNESIUM OXIDE
     Dosage: 750 MG/DAY, UNKNOWN FREQ.
     Route: 065
     Dates: start: 20190704

REACTIONS (1)
  - Toxic skin eruption [Recovered/Resolved]

NARRATIVE: CASE EVENT DATE: 20190705
